FAERS Safety Report 23193419 (Version 1)
Quarter: 2023Q4

REPORT INFORMATION
  Report Type: Spontaneous
  Country: US (occurrence: None)
  Receive Date: 20231115
  Receipt Date: 20231115
  Transmission Date: 20240109
  Serious: Yes (Hospitalization)
  Sender: FDA-Public Use
  Company Number: None

PATIENT
  Age: 88 Year
  Sex: Female

DRUGS (1)
  1. TYMLOS [Suspect]
     Active Substance: ABALOPARATIDE
     Dosage: OTHER STRENGTH : 3120UG/1.5ML;?FREQUENCY : DAILY;?
     Route: 058

REACTIONS (3)
  - Fall [None]
  - Intentional dose omission [None]
  - Hip fracture [None]

NARRATIVE: CASE EVENT DATE: 20231103
